FAERS Safety Report 8238581-2 (Version None)
Quarter: 2012Q1

REPORT INFORMATION
  Report Type: 
  Country: None (occurrence: None)
  Receive Date: 20120327
  Receipt Date: 20120320
  Transmission Date: 20120608
  Serious: Yes (Death)
  Sender: FDA-Public Use
  Company Number: FI-PFIZER INC-2012049001

PATIENT
  Age: 26 Year
  Sex: Male

DRUGS (4)
  1. BUPRENORPHINE [Concomitant]
  2. PREGABALIN [Suspect]
     Dosage: UNK
  3. AMPHETAMINES [Concomitant]
  4. ALPRAZOLAM [Concomitant]

REACTIONS (2)
  - COMPLETED SUICIDE [None]
  - POISONING [None]
